FAERS Safety Report 8202432-2 (Version None)
Quarter: 2012Q1

REPORT INFORMATION
  Report Type: 
  Country: None (occurrence: None)
  Receive Date: 20120312
  Receipt Date: 20111121
  Transmission Date: 20120608
  Serious: No
  Sender: FDA-Public Use
  Company Number: US-ABBOTT-11P-163-0876771-00

PATIENT
  Sex: Female
  Weight: 97.61 kg

DRUGS (5)
  1. DEPAKOTE [Suspect]
     Indication: CONVULSION
     Dates: start: 20110301
  2. CELEXA [Suspect]
     Indication: DEPRESSION
  3. GEODON [Suspect]
     Indication: BIPOLAR DISORDER
  4. SEROQUEL [Suspect]
     Indication: INSOMNIA
  5. BENADRYL [Suspect]
     Indication: INSOMNIA

REACTIONS (1)
  - DRUG SCREEN POSITIVE [None]
